FAERS Safety Report 4989732-4 (Version None)
Quarter: 2006Q2

REPORT INFORMATION
  Report Type: 
  Country: None (occurrence: None)
  Receive Date: 20060501
  Receipt Date: 20060414
  Transmission Date: 20061013
  Serious: Yes (Hospitalization)
  Sender: FDA-Public Use
  Company Number: 8016369

PATIENT
  Age: 84 Year
  Sex: Male
  Weight: 62.1 kg

DRUGS (5)
  1. ZAROXOLYN [Suspect]
     Dosage: NI PO
     Route: 048
  2. BLINDED NESIRITIDE [Suspect]
     Indication: CARDIAC FAILURE
     Dosage: 2 UG/KG IV
     Route: 042
  3. BLINDED NESIRITIDE [Suspect]
     Indication: CARDIAC FAILURE
     Dosage: 0.01 IU/KG IV
     Route: 042
  4. BLINDED-PLACEBO [Suspect]
     Indication: CARDIAC FAILURE
     Dosage: 2 UG/KG IV
     Route: 042
  5. BLINDED-PLACEBO [Suspect]
     Indication: CARDIAC FAILURE
     Dosage: 0.01 UG/KG IV
     Route: 042

REACTIONS (5)
  - CARDIAC FAILURE CONGESTIVE [None]
  - CONDITION AGGRAVATED [None]
  - DRUG INTERACTION [None]
  - RENAL FAILURE ACUTE [None]
  - TROPONIN INCREASED [None]
